FAERS Safety Report 9554460 (Version 1)
Quarter: 2013Q3

REPORT INFORMATION
  Report Type: Report from Study
  Country: US (occurrence: US)
  Receive Date: 20130925
  Receipt Date: 20130925
  Transmission Date: 20140515
  Serious: Yes (Other)
  Sender: FDA-Public Use
  Company Number: US-ROCHE-1277525

PATIENT
  Sex: Male

DRUGS (13)
  1. LUCENTIS [Suspect]
     Indication: DIABETIC RETINAL OEDEMA
     Dosage: IN LEFT EYE
     Route: 065
  2. LUCENTIS [Suspect]
     Indication: DIABETIC RETINOPATHY
  3. KLONOPIN [Suspect]
     Indication: PRODUCT USED FOR UNKNOWN INDICATION
     Route: 065
  4. ASA [Concomitant]
     Route: 065
  5. LANTUS [Concomitant]
  6. LIPITOR [Concomitant]
  7. LISINOPRIL [Concomitant]
  8. METFORMIN HCL [Concomitant]
  9. NEURONTIN (UNITED STATES) [Concomitant]
  10. REGLAN [Concomitant]
  11. HCTZ [Concomitant]
  12. RANEXA [Concomitant]
  13. NOVOLOG [Concomitant]

REACTIONS (2)
  - Vision blurred [Unknown]
  - Blindness transient [Unknown]
